FAERS Safety Report 6816256-1 (Version None)
Quarter: 2010Q2

REPORT INFORMATION
  Report Type: 
  Country: None (occurrence: None)
  Receive Date: 20100630
  Receipt Date: 20100621
  Transmission Date: 20101027
  Serious: Yes (Other)
  Sender: FDA-Public Use
  Company Number: US-1182346

PATIENT
  Sex: Female

DRUGS (1)
  1. BSS [Suspect]
     Dosage: 500 ML 1X OD

REACTIONS (3)
  - EYE INFECTION [None]
  - SCLERITIS [None]
  - VISUAL ACUITY REDUCED [None]
